FAERS Safety Report 25430744 (Version 1)
Quarter: 2025Q2

REPORT INFORMATION
  Report Type: Spontaneous
  Country: GR (occurrence: GR)
  Receive Date: 20250612
  Receipt Date: 20250612
  Transmission Date: 20250717
  Serious: Yes (Other)
  Sender: ABBVIE
  Company Number: None

PATIENT
  Age: 49 Year
  Sex: Female
  Weight: 62 kg

DRUGS (2)
  1. CIPRALEX [Suspect]
     Active Substance: ESCITALOPRAM OXALATE
     Indication: Anxiety disorder
     Route: 048
  2. PREBANEL [Concomitant]
     Indication: Anxiety disorder
     Route: 048

REACTIONS (2)
  - Presyncope [Recovering/Resolving]
  - Cardiac discomfort [Recovering/Resolving]
